FAERS Safety Report 23579233 (Version 2)
Quarter: 2024Q2

REPORT INFORMATION
  Report Type: Report from Study
  Country: CA (occurrence: CA)
  Receive Date: 20240229
  Receipt Date: 20240429
  Transmission Date: 20240716
  Serious: Yes (Other)
  Sender: FDA-Public Use
  Company Number: CA-MYLANLABS-2021M1033406

PATIENT

DRUGS (1)
  1. HULIO [Suspect]
     Active Substance: ADALIMUMAB-FKJP
     Indication: Crohn^s disease
     Dosage: 40 MG, QW (EVERY WEEK)
     Route: 058
     Dates: start: 20210602

REACTIONS (7)
  - Illness [Unknown]
  - Crohn^s disease [Unknown]
  - Viral tonsillitis [Unknown]
  - Stress [Unknown]
  - Anxiety [Unknown]
  - Product dose omission issue [Unknown]
  - Off label use [Unknown]

NARRATIVE: CASE EVENT DATE: 20210602
